FAERS Safety Report 17080219 (Version 2)
Quarter: 2019Q4

REPORT INFORMATION
  Report Type: Spontaneous
  Country: DE (occurrence: DE)
  Receive Date: 20191127
  Receipt Date: 20191213
  Transmission Date: 20200122
  Serious: Yes (Hospitalization, Other)
  Sender: FDA-Public Use
  Company Number: DE-SUN PHARMACEUTICAL INDUSTRIES LTD-2019R1-215492

PATIENT
  Age: 32 Year
  Sex: Male

DRUGS (9)
  1. VENLAFAXINE [Suspect]
     Active Substance: VENLAFAXINE HYDROCHLORIDE
     Indication: PRODUCT USED FOR UNKNOWN INDICATION
     Dosage: UNK
     Route: 050
     Dates: start: 201706
  2. LITHIUM. [Suspect]
     Active Substance: LITHIUM
     Dosage: 900 MILLIGRAM, DAILY
     Route: 065
  3. TIZANIDINE. [Suspect]
     Active Substance: TIZANIDINE
     Indication: PRODUCT USED FOR UNKNOWN INDICATION
     Dosage: 12 MILLIGRAM, QD
     Route: 065
  4. LITHIUM. [Suspect]
     Active Substance: LITHIUM
     Dosage: 900 MILLIGRAM, DAILY
     Route: 065
  5. DOXEPIN [Suspect]
     Active Substance: DOXEPIN
     Indication: ANTIDEPRESSANT THERAPY
     Dosage: 100 MILLIGRAM, QD
     Route: 065
  6. PREGABALIN. [Suspect]
     Active Substance: PREGABALIN
     Indication: PRODUCT USED FOR UNKNOWN INDICATION
     Dosage: 300 MILLIGRAM, QD
     Route: 065
  7. DOXEPIN [Suspect]
     Active Substance: DOXEPIN
     Dosage: 52.5 MILLIGRAM, DAILY
     Route: 065
  8. LITHIUM. [Suspect]
     Active Substance: LITHIUM
     Indication: PRODUCT USED FOR UNKNOWN INDICATION
     Dosage: 1125 MILLIGRAM, QD
     Route: 065
  9. LITHIUM. [Suspect]
     Active Substance: LITHIUM
     Dosage: UNK
     Route: 065
     Dates: start: 201706

REACTIONS (9)
  - Pleural effusion [Unknown]
  - Drug ineffective [Unknown]
  - Oedema [Recovered/Resolved]
  - Kidney enlargement [Unknown]
  - Pain [Unknown]
  - Weight increased [Unknown]
  - Dyspnoea [Unknown]
  - Nephrotic syndrome [Recovered/Resolved]
  - Persistent depressive disorder [Unknown]

NARRATIVE: CASE EVENT DATE: 201711
